FAERS Safety Report 25477276 (Version 1)
Quarter: 2025Q2

REPORT INFORMATION
  Report Type: Report from Study
  Country: JP (occurrence: JP)
  Receive Date: 20250625
  Receipt Date: 20250625
  Transmission Date: 20250716
  Serious: Yes (Other)
  Sender: RANBAXY
  Company Number: JP-SUN PHARMACEUTICAL INDUSTRIES LTD-2025RR-513244

PATIENT
  Age: 57 Year
  Sex: Male

DRUGS (2)
  1. CAPECITABINE [Suspect]
     Active Substance: CAPECITABINE
     Indication: Colorectal cancer
     Dosage: 3600 MILLIGRAM, DAILY
     Route: 065
  2. CAPECITABINE [Suspect]
     Active Substance: CAPECITABINE
     Dosage: 3000 MILLIGRAM, DAILY
     Route: 065

REACTIONS (5)
  - Fatigue [Unknown]
  - Palmar-plantar erythrodysaesthesia syndrome [Unknown]
  - Diarrhoea [Unknown]
  - Facial pain [Unknown]
  - Nausea [Unknown]
